FAERS Safety Report 11320205 (Version 1)
Quarter: 2015Q3

REPORT INFORMATION
  Report Type: Spontaneous
  Country: US (occurrence: None)
  Receive Date: 20150728
  Receipt Date: 20150728
  Transmission Date: 20151125
  Serious: No
  Sender: FDA-Public Use
  Company Number: None

PATIENT
  Age: 60 Year
  Sex: Male

DRUGS (3)
  1. MORPHINE [Suspect]
     Active Substance: MORPHINE
  2. OXYCODONE [Suspect]
     Active Substance: OXYCODONE
  3. TRAZODONE [Suspect]
     Active Substance: TRAZODONE HYDROCHLORIDE
     Indication: PAIN
     Route: 048
     Dates: end: 20150508

REACTIONS (8)
  - Lethargy [None]
  - Miosis [None]
  - Somnolence [None]
  - Drug ineffective [None]
  - Depressed level of consciousness [None]
  - Mental status changes [None]
  - Pyrexia [None]
  - Bradypnoea [None]

NARRATIVE: CASE EVENT DATE: 20150508
